FAERS Safety Report 20418664 (Version 1)
Quarter: 2022Q1

REPORT INFORMATION
  Report Type: Report from Study
  Country: US (occurrence: US)
  Receive Date: 20220202
  Receipt Date: 20220202
  Transmission Date: 20220423
  Serious: Yes (Death, Other)
  Sender: FDA-Public Use
  Company Number: US-SANOFI-00951338

PATIENT
  Age: 68 Year
  Sex: Male

DRUGS (2)
  1. INSULIN GLARGINE [Suspect]
     Active Substance: INSULIN GLARGINE
     Indication: Type 2 diabetes mellitus
     Dosage: 75 IU, QD
  2. INSULIN GLULISINE [Suspect]
     Active Substance: INSULIN GLULISINE
     Indication: Type 2 diabetes mellitus
     Dosage: 102 IU, QD

REACTIONS (3)
  - Myocardial infarction [Fatal]
  - Memory impairment [Unknown]
  - Vascular graft [Unknown]

NARRATIVE: CASE EVENT DATE: 20200704
